FAERS Safety Report 25523506 (Version 1)
Quarter: 2025Q3

REPORT INFORMATION
  Report Type: Spontaneous
  Country: CN (occurrence: CN)
  Receive Date: 20250707
  Receipt Date: 20250707
  Transmission Date: 20251020
  Serious: Yes (Other)
  Sender: AMGEN
  Company Number: CN-AMGEN-CHNSP2025131027

PATIENT

DRUGS (1)
  1. APREMILAST [Suspect]
     Active Substance: APREMILAST
     Indication: Behcet^s syndrome
     Route: 065

REACTIONS (7)
  - Behcet^s syndrome [Unknown]
  - Therapy partial responder [Unknown]
  - Treatment failure [Unknown]
  - Drug intolerance [Unknown]
  - Adverse event [Unknown]
  - Nausea [Recovering/Resolving]
  - Diarrhoea [Recovering/Resolving]
